FAERS Safety Report 8607670-2 (Version None)
Quarter: 2012Q3

REPORT INFORMATION
  Report Type: 
  Country: None (occurrence: None)
  Receive Date: 20120821
  Receipt Date: 20120815
  Transmission Date: 20120928
  Serious: No
  Sender: FDA-Public Use
  Company Number: US-B.I. PHARMACEUTICALS,INC./RIDGEFIELD-2012-BP-19575BP

PATIENT
  Sex: Male

DRUGS (10)
  1. HYDROCODONE BITARTRATE AND ACETAMINOPHEN [Concomitant]
  2. ALBUTEROL [Concomitant]
  3. SPIRIVA [Suspect]
     Dosage: 18 MCG
     Route: 055
  4. PREDNISONE [Concomitant]
     Route: 048
  5. ENABLEX [Concomitant]
     Route: 048
  6. CIPROFLOXACIN [Concomitant]
  7. OMEPRAZOLE [Concomitant]
  8. SIMVASTATIN [Concomitant]
  9. GABAPENTIN [Concomitant]
     Route: 048
  10. METHYLPREDNISOLONE [Concomitant]

REACTIONS (1)
  - DEAFNESS [None]
